FAERS Safety Report 15568814 (Version 2)
Quarter: 2022Q1

REPORT INFORMATION
  Report Type: Spontaneous
  Country: CH (occurrence: CH)
  Receive Date: 20181031
  Receipt Date: 20220129
  Transmission Date: 20220423
  Serious: Yes (Hospitalization)
  Sender: FDA-Public Use
  Company Number: CH-SM-2018-12975

PATIENT
  Age: 68 Year
  Sex: Female

DRUGS (6)
  1. DEXAMETHASONE [Suspect]
     Active Substance: DEXAMETHASONE
     Indication: Chemotherapy
     Dosage: 1 X 20 MG EN IV LE 27.8.18 ET 1 X 20 MG EN IV LE 24.9.18 ; IN TOTAL
     Route: 041
     Dates: start: 20180827, end: 20180924
  2. YONDELIS [Suspect]
     Active Substance: TRABECTEDIN
     Indication: Leiomyosarcoma
     Dosage: 1 X 2MG EN IV LE 27.8.18 ET 1 X 2MG EN IV LE 24.9.18 ; IN TOTAL
     Route: 041
     Dates: start: 20180827, end: 20180924
  3. NEULASTA [Concomitant]
     Active Substance: PEGFILGRASTIM
     Dosage: DOSE NON CONNUE
     Route: 058
     Dates: start: 20180828, end: 20180828
  4. METOPROLOL SUCCINATE [Concomitant]
     Active Substance: METOPROLOL SUCCINATE
     Route: 048
  5. LISINOPRIL [Concomitant]
     Active Substance: LISINOPRIL
     Route: 048
  6. Temesta [Concomitant]
     Dosage: AS NECESSARY
     Route: 048

REACTIONS (5)
  - Pneumonia [Recovered/Resolved]
  - Cardiac failure [Recovered/Resolved]
  - Dyspnoea [Recovered/Resolved]
  - Cardiac failure [Recovering/Resolving]
  - Dyspnoea [Recovered/Resolved]

NARRATIVE: CASE EVENT DATE: 20180830
